FAERS Safety Report 4669955-4 (Version None)
Quarter: 2005Q2

REPORT INFORMATION
  Report Type: 
  Country: None (occurrence: None)
  Receive Date: 20050523
  Receipt Date: 20050303
  Transmission Date: 20051028
  Serious: Yes (Hospitalization)
  Sender: FDA-Public Use
  Company Number: PHEH2005US02715

PATIENT
  Age: 58 Year
  Sex: Female

DRUGS (12)
  1. AREDIA [Suspect]
     Indication: HYPERCALCAEMIA
     Dosage: 90 MG, ONCE/SINGLE
     Dates: start: 20050228, end: 20050228
  2. PRAVACHOL [Concomitant]
     Dosage: 80 MG, QHS
  3. ALTACE [Concomitant]
     Dosage: 10 MG, QD
  4. PLETAL [Concomitant]
     Dosage: 100 MG, BID
  5. LASIX [Concomitant]
     Dosage: 20 MG, BID
  6. PROCARDIA [Concomitant]
     Dosage: 90 MG, QD
  7. METFORMIN [Concomitant]
     Dosage: 1 G, BID
  8. GLYBURIDE [Concomitant]
     Dosage: 10 MG, BID
  9. CLONIDINE [Concomitant]
     Dosage: 0.3 MG, TID
  10. BUSPAR [Concomitant]
     Dosage: 10 MG, BID
  11. METOPROLOL [Concomitant]
     Dosage: 100 MG, BID
  12. HUMULIN 70/30 [Concomitant]
     Dosage: 35 UNITS/BID

REACTIONS (6)
  - BLOOD ALBUMIN DECREASED [None]
  - BLOOD CREATININE INCREASED [None]
  - HAEMATOCRIT DECREASED [None]
  - HAEMOGLOBIN DECREASED [None]
  - LEUKOPENIA [None]
  - PLATELET COUNT DECREASED [None]
